FAERS Safety Report 23792214 (Version 8)
Quarter: 2025Q2

REPORT INFORMATION
  Report Type: Report from Study
  Country: GB (occurrence: GB)
  Receive Date: 20240429
  Receipt Date: 20250401
  Transmission Date: 20250716
  Serious: Yes (Hospitalization, Other)
  Sender: TAKEDA
  Company Number: GB-TAKEDA-2024TUS039714

PATIENT
  Sex: Female

DRUGS (2)
  1. VEDOLIZUMAB [Suspect]
     Active Substance: VEDOLIZUMAB
     Indication: Crohn^s disease
     Dosage: 108 MILLIGRAM, Q2WEEKS
  2. VEDOLIZUMAB [Suspect]
     Active Substance: VEDOLIZUMAB

REACTIONS (16)
  - Bell^s palsy [Unknown]
  - Acute kidney injury [Unknown]
  - Tooth abscess [Unknown]
  - Lower respiratory tract infection [Unknown]
  - Blood pressure increased [Unknown]
  - Chest pain [Unknown]
  - Pneumonia [Unknown]
  - Crohn^s disease [Unknown]
  - Injection site pain [Unknown]
  - Cardiac disorder [Unknown]
  - Arthropathy [Unknown]
  - Lung disorder [Unknown]
  - Injection site bruising [Unknown]
  - Hepatic function abnormal [Unknown]
  - Device issue [Unknown]
  - Incorrect dose administered [Unknown]
